FAERS Safety Report 19570288 (Version 1)
Quarter: 2021Q3

REPORT INFORMATION
  Report Type: Spontaneous
  Country: US (occurrence: US)
  Receive Date: 20210716
  Receipt Date: 20210716
  Transmission Date: 20211014
  Serious: Yes (Other)
  Sender: FDA-Public Use
  Company Number: US-BAYER-2021-175817

PATIENT
  Sex: Female

DRUGS (4)
  1. ASPIRIN (CARDIO) [Suspect]
     Active Substance: ASPIRIN
     Route: 064
  2. PREDNISONE. [Concomitant]
     Active Substance: PREDNISONE
     Route: 064
  3. IMMUNOGLOBULIN I.V [Concomitant]
     Active Substance: HUMAN IMMUNOGLOBULIN G
     Route: 064
  4. HEPARIN [Concomitant]
     Active Substance: HEPARIN SODIUM
     Route: 064

REACTIONS (4)
  - Foetal growth restriction [None]
  - Premature baby [None]
  - Foetal exposure during pregnancy [None]
  - Low birth weight baby [None]
